FAERS Safety Report 4666541-7 (Version None)
Quarter: 2005Q2

REPORT INFORMATION
  Report Type: 
  Country: None (occurrence: None)
  Receive Date: 20050518
  Receipt Date: 20050204
  Transmission Date: 20051028
  Serious: Yes (Other)
  Sender: FDA-Public Use
  Company Number: 2005025693

PATIENT
  Age: 40 Year
  Sex: Female
  Weight: 135.1719 kg

DRUGS (2)
  1. PROVERA [Suspect]
     Indication: CONTRACEPTION
     Dosage: 150 MG (150 MG, TRIMESTRAL), INTRAMUSCULAR
     Route: 030
     Dates: start: 19970101
  2. WARFARIN SODIUM [Concomitant]

REACTIONS (3)
  - FALL [None]
  - LIGAMENT INJURY [None]
  - THROMBOSIS [None]
